FAERS Safety Report 8452100 (Version 7)
Quarter: 2013Q4

REPORT INFORMATION
  Report Type: Spontaneous
  Country: BR (occurrence: BR)
  Receive Date: 20120309
  Receipt Date: 20131212
  Transmission Date: 20140711
  Serious: Yes (Other)
  Sender: FDA-Public Use
  Company Number: BR-AMGEN-US427949

PATIENT
  Age: 48 Year
  Sex: Female

DRUGS (15)
  1. ENBREL [Suspect]
     Indication: RHEUMATOID ARTHRITIS
     Dosage: 50 MG, ONCE WEEKLY
     Route: 058
     Dates: start: 2007
  2. ENBREL [Suspect]
     Indication: ANKYLOSING SPONDYLITIS
     Dosage: 50 MG, 1X/WEEK
     Route: 058
     Dates: start: 201110
  3. ENBREL [Suspect]
     Dosage: UNK
     Route: 065
  4. ENBREL [Suspect]
     Dosage: UNK
     Route: 065
  5. VITAMIN B1 [Concomitant]
     Dosage: UNK
  6. CYCLOBENZAPRINE [Concomitant]
     Dosage: UNK
  7. GABAPENTIN [Concomitant]
     Dosage: UNK
  8. PRISTIQ [Concomitant]
     Dosage: UNK
     Route: 048
  9. RIVOTRIL [Concomitant]
     Dosage: 4 MG,1X/DAY
     Route: 065
     Dates: end: 2010
  10. RIVOTRIL [Concomitant]
     Dosage: UNK
     Route: 065
     Dates: start: 2010
  11. LYRICA [Concomitant]
     Indication: PAIN
     Dosage: UNK
  12. FOLIC ACID [Concomitant]
     Dosage: UNK
  13. OSTEO BI-FLEX [Concomitant]
     Dosage: UNK
  14. CYMBALTA [Concomitant]
     Dosage: UNK
  15. METHOTREXATE [Concomitant]
     Dosage: UNK

REACTIONS (19)
  - Decreased immune responsiveness [Unknown]
  - Back pain [Not Recovered/Not Resolved]
  - Nodule [Unknown]
  - Wound [Unknown]
  - Local swelling [Unknown]
  - Skin exfoliation [Unknown]
  - Rheumatoid arthritis [Recovered/Resolved]
  - Pain [Unknown]
  - Pruritus [Unknown]
  - Benign neoplasm [Unknown]
  - Wrong technique in drug usage process [Unknown]
  - Emotional disorder [Unknown]
  - Walking aid user [Unknown]
  - Musculoskeletal pain [Unknown]
  - Panic attack [Recovered/Resolved]
  - Pain in extremity [Unknown]
  - Arthralgia [Unknown]
  - Sinusitis [Unknown]
  - Injection site pain [Unknown]
